FAERS Safety Report 7685000-0 (Version None)
Quarter: 2011Q3

REPORT INFORMATION
  Report Type: 
  Country: None (occurrence: None)
  Receive Date: 20110816
  Receipt Date: 20110805
  Transmission Date: 20111222
  Serious: Yes (Hospitalization)
  Sender: FDA-Public Use
  Company Number: US-JNJFOC-20080605778

PATIENT
  Sex: Male
  Weight: 47.9 kg

DRUGS (3)
  1. PENTASA [Concomitant]
  2. INFLIXIMAB [Suspect]
     Dates: start: 20080228
  3. INFLIXIMAB [Suspect]
     Indication: CROHN'S DISEASE
     Dates: start: 20080201

REACTIONS (3)
  - CHOLELITHIASIS [None]
  - PANCREATITIS [None]
  - CHOLECYSTITIS [None]
